FAERS Safety Report 18386485 (Version 1)
Quarter: 2020Q4

REPORT INFORMATION
  Report Type: Other
  Country: GB (occurrence: GB)
  Receive Date: 20201015
  Receipt Date: 20201015
  Transmission Date: 20210114
  Serious: Yes (Other)
  Sender: FDA-Public Use
  Company Number: GB-STRIDES ARCOLAB LIMITED-2020SP012225

PATIENT
  Age: 24 Year
  Sex: Female
  Weight: 53 kg

DRUGS (1)
  1. PREDNISOLONE. [Suspect]
     Active Substance: PREDNISOLONE
     Indication: ANAPHYLACTIC REACTION
     Dosage: 80 MILLIGRAM, UNKNOWN
     Route: 048
     Dates: start: 20200914, end: 20200916

REACTIONS (4)
  - Aphasia [Unknown]
  - Amnesia [Recovered/Resolved]
  - Cognitive disorder [Recovered/Resolved]
  - Off label use [Unknown]

NARRATIVE: CASE EVENT DATE: 20200914
